FAERS Safety Report 11020716 (Version 2)
Quarter: 2015Q2

REPORT INFORMATION
  Report Type: Report from Study
  Country: US (occurrence: US)
  Receive Date: 20150413
  Receipt Date: 20150427
  Transmission Date: 20150821
  Serious: Yes (Hospitalization, Other)
  Sender: FDA-Public Use
  Company Number: US-BIOGENIDEC-2015BI044527

PATIENT
  Sex: Female

DRUGS (1)
  1. TYSABRI [Suspect]
     Active Substance: NATALIZUMAB
     Indication: MULTIPLE SCLEROSIS
     Route: 042
     Dates: start: 20100511

REACTIONS (12)
  - Gallbladder disorder [Recovered/Resolved]
  - Scar [Recovered/Resolved]
  - Uterine leiomyoma [Recovered/Resolved]
  - Pyrexia [Recovered/Resolved]
  - Mobility decreased [Not Recovered/Not Resolved]
  - Seizure [Unknown]
  - Urinary tract infection [Not Recovered/Not Resolved]
  - Pollakiuria [Unknown]
  - Vomiting [Recovered/Resolved]
  - Nephrolithiasis [Not Recovered/Not Resolved]
  - Haemorrhage [Recovered/Resolved]
  - Pain [Not Recovered/Not Resolved]

NARRATIVE: CASE EVENT DATE: 2013
